FAERS Safety Report 8674250 (Version 2)
Quarter: 2012Q4

REPORT INFORMATION
  Report Type: 
  Country: DK (occurrence: JP)
  Receive Date: 20120719
  Receipt Date: 20121121
  Transmission Date: 20130627
  Serious: Yes (Other)
  Sender: FDA-Public Use
  Company Number: JP-FRI-1000037216

PATIENT
  Age: 64 Year
  Sex: Female
  Weight: 41 kg

DRUGS (16)
  1. LEXAPRO [Suspect]
     Indication: DEPRESSION
     Dosage: 10 mg
     Route: 048
     Dates: start: 20120529, end: 20120613
  2. LEXAPRO [Suspect]
     Indication: DEPRESSION
     Dosage: 20 mg
     Route: 048
     Dates: start: 20120614, end: 20120707
  3. LEXAPRO [Suspect]
     Dosage: 10 mg
     Route: 048
     Dates: start: 20120708, end: 20120709
  4. SELENICA [Suspect]
     Dosage: 400 mg
     Route: 048
     Dates: start: 20120621, end: 20120627
  5. SELENICA [Suspect]
     Dosage: 600 mg
     Route: 048
     Dates: start: 20120628, end: 20120701
  6. ZYPREXA [Suspect]
     Dosage: 5 mg
     Route: 048
     Dates: start: 20120419, end: 20120425
  7. ZYPREXA [Suspect]
     Dosage: 10 mg
     Route: 048
     Dates: start: 20120426, end: 20120606
  8. ZYPREXA [Suspect]
     Dosage: 15 mg
     Route: 048
     Dates: start: 20120607, end: 20120620
  9. ZYPREXA [Suspect]
     Dosage: 10 mg
     Route: 048
     Dates: start: 20120621, end: 20120701
  10. DOGMATYL [Concomitant]
     Dosage: 450 mg
     Route: 048
  11. WINTERMIN [Concomitant]
     Dosage: 30 mg
  12. NELBON [Concomitant]
     Dosage: 10 mg
     Route: 048
  13. CELECOX [Concomitant]
     Dosage: 200 mg
     Route: 048
  14. MUCOSTA [Concomitant]
     Dosage: 200 mg
     Route: 048
  15. MAGMITT [Concomitant]
     Route: 048
  16. FORSENID [Concomitant]
     Route: 048

REACTIONS (1)
  - Liver disorder [Recovered/Resolved]
